FAERS Safety Report 13299346 (Version 1)
Quarter: 2017Q1

REPORT INFORMATION
  Report Type: Report from Study
  Country: NO (occurrence: NO)
  Receive Date: 20170306
  Receipt Date: 20170306
  Transmission Date: 20170428
  Serious: Yes (Other)
  Sender: FDA-Public Use
  Company Number: NO-PFIZER INC-2017095523

PATIENT
  Age: 59 Year
  Sex: Female

DRUGS (8)
  1. AROMASIN [Suspect]
     Active Substance: EXEMESTANE
     Indication: BREAST CANCER METASTATIC
     Dosage: 25 MG, 1X/DAY
     Route: 048
     Dates: start: 20160728
  2. AFINITOR [Suspect]
     Active Substance: EVEROLIMUS
     Indication: BREAST CANCER METASTATIC
     Dosage: 10 MG, 1X/DAY
     Route: 048
     Dates: start: 20160728
  3. AFINITOR [Suspect]
     Active Substance: EVEROLIMUS
     Indication: METASTASES TO LUNG
  4. AROMASIN [Suspect]
     Active Substance: EXEMESTANE
     Indication: METASTASES TO LYMPH NODES
  5. DIOVAN COMP [Concomitant]
     Active Substance: HYDROCHLOROTHIAZIDE\VALSARTAN
     Dosage: 80 MG/12.5 MG, 1X/DAY
     Route: 048
     Dates: start: 20160404
  6. AROMASIN [Suspect]
     Active Substance: EXEMESTANE
     Indication: METASTASES TO LUNG
  7. CALCIGRAN FORTE [Concomitant]
     Dosage: 500 MG/400 IE, 2X/DAY
     Route: 048
     Dates: start: 20161123
  8. AFINITOR [Suspect]
     Active Substance: EVEROLIMUS
     Indication: METASTASES TO LYMPH NODES

REACTIONS (19)
  - Fatigue [Recovered/Resolved]
  - Cough [Recovered/Resolved]
  - Hyperthyroidism [Not Recovered/Not Resolved]
  - Thyroid neoplasm [Unknown]
  - Infection [Recovered/Resolved]
  - Weight decreased [Recovered/Resolved]
  - Second primary malignancy [Unknown]
  - Pyrexia [Recovered/Resolved]
  - Epistaxis [Recovered/Resolved]
  - Stomatitis [Recovered/Resolved]
  - Toxic nodular goitre [Not Recovered/Not Resolved]
  - Alopecia [Not Recovered/Not Resolved]
  - Condition aggravated [Not Recovered/Not Resolved]
  - Nausea [Recovered/Resolved]
  - Urticaria [Unknown]
  - Insomnia [Recovered/Resolved]
  - Rash [Recovered/Resolved]
  - Decreased appetite [Recovered/Resolved]
  - Hot flush [Not Recovered/Not Resolved]

NARRATIVE: CASE EVENT DATE: 201607
